FAERS Safety Report 5034637-6 (Version None)
Quarter: 2006Q2

REPORT INFORMATION
  Report Type: 
  Country: None (occurrence: None)
  Receive Date: 20060621
  Receipt Date: 20060608
  Transmission Date: 20061013
  Serious: Yes (Death)
  Sender: FDA-Public Use
  Company Number: 226140

PATIENT
  Age: 82 Year
  Sex: Male

DRUGS (6)
  1. MABTHERA               (RITUXIMAB) [Suspect]
     Dosage: 700 MG, INTRAVENOUS
     Route: 042
     Dates: start: 20060324, end: 20060410
  2. CYCLOPHOSPHAMIDE [Concomitant]
  3. CORTISON              (CORTISONE ACETATE) [Concomitant]
  4. WARFARIN SODIUM [Concomitant]
  5. FUROSEMIDE [Concomitant]
  6. ANTIBIOTICS [Concomitant]

REACTIONS (8)
  - ATRIAL FIBRILLATION [None]
  - BLOOD ALBUMIN DECREASED [None]
  - CLOSTRIDIAL INFECTION [None]
  - HYPOTENSION [None]
  - OEDEMA [None]
  - PLEURAL EFFUSION [None]
  - SEPSIS [None]
  - STAPHYLOCOCCAL INFECTION [None]
